FAERS Safety Report 9210322 (Version 2)
Quarter: 2013Q4

REPORT INFORMATION
  Report Type: Spontaneous
  Country: US (occurrence: US)
  Receive Date: 20130404
  Receipt Date: 20131227
  Transmission Date: 20140711
  Serious: Yes (Other)
  Sender: FDA-Public Use
  Company Number: US-BAYER-2013-040337

PATIENT
  Age: 25 Year
  Sex: Female

DRUGS (3)
  1. YAZ [Suspect]
  2. FLUCONAZOLE [Concomitant]
     Dosage: 150 MG, UNK
  3. CUTIVATE [Concomitant]
     Dosage: 0.05 %, UNK

REACTIONS (7)
  - Gallbladder injury [None]
  - Injury [None]
  - Pain [None]
  - Anxiety [None]
  - Anhedonia [None]
  - Quality of life decreased [None]
  - Cholecystitis [None]
